FAERS Safety Report 7389926-7 (Version None)
Quarter: 2011Q2

REPORT INFORMATION
  Report Type: 
  Country: None (occurrence: None)
  Receive Date: 20110401
  Receipt Date: 20110321
  Transmission Date: 20111010
  Serious: Yes (Death, Hospitalization)
  Sender: FDA-Public Use
  Company Number: US-CELGENEUS-163-21880-11030570

PATIENT
  Sex: Male
  Weight: 105 kg

DRUGS (19)
  1. DOCUSATE SODIUM [Concomitant]
     Dosage: 100 MILLIGRAM
     Route: 065
  2. REVLIMID [Suspect]
     Dosage: 50 MILLIGRAM
     Route: 048
     Dates: start: 20101105, end: 20101125
  3. REVLIMID [Suspect]
     Dosage: 50 MILLIGRAM
     Route: 048
     Dates: start: 20101217, end: 20110106
  4. FLAGYL [Concomitant]
     Dosage: 500 MILLIGRAM
     Route: 048
     Dates: start: 20110101
  5. PROSCAR [Concomitant]
     Indication: URINARY RETENTION
     Dosage: 5 MILLIGRAM
     Route: 065
  6. ERTAPENEM [Concomitant]
     Route: 065
     Dates: start: 20110112
  7. VIDAZA [Suspect]
     Dosage: 176 MILLIGRAM
     Route: 058
     Dates: start: 20101210, end: 20101216
  8. FLOMAX [Concomitant]
  9. SOTALOL [Concomitant]
     Indication: ATRIAL FIBRILLATION
     Dosage: 80 MILLIGRAM
     Route: 065
  10. PROSCAR [Concomitant]
  11. BLOOD TRANSFUSION [Concomitant]
     Indication: PANCYTOPENIA
     Route: 051
     Dates: start: 20110101
  12. ACETAMINOPHEN [Concomitant]
     Route: 065
  13. CIPROFLOXACIN [Concomitant]
     Route: 065
     Dates: start: 20101101, end: 20101101
  14. VANCOMYCIN [Concomitant]
     Route: 048
     Dates: start: 20110101
  15. NEUPOGEN [Concomitant]
     Indication: PANCYTOPENIA
     Dosage: 480 MICROGRAM
     Route: 058
     Dates: start: 20110101
  16. DIGOXIN [Concomitant]
     Route: 065
     Dates: start: 20110101
  17. VIDAZA [Suspect]
     Dosage: 179 MILLIGRAM
     Route: 058
     Dates: start: 20101029, end: 20101104
  18. FLOMAX [Concomitant]
     Indication: URINARY RETENTION
     Dosage: .4 MILLIGRAM
     Route: 065
  19. MILK OF MAGNESIA TAB [Concomitant]
     Route: 065

REACTIONS (2)
  - ACUTE MYELOID LEUKAEMIA [None]
  - ACUTE RESPIRATORY FAILURE [None]
